FAERS Safety Report 7516160-X (Version None)
Quarter: 2011Q2

REPORT INFORMATION
  Report Type: 
  Country: None (occurrence: None)
  Receive Date: 20110601
  Receipt Date: 20110513
  Transmission Date: 20111010
  Serious: No
  Sender: FDA-Public Use
  Company Number: US-B.I. PHARMACEUTICALS,INC./RIDGEFIELD-2011-BP-13101BP

PATIENT
  Sex: Male

DRUGS (5)
  1. LOSARTAN POTASSIUM [Concomitant]
     Indication: ATRIAL FIBRILLATION
     Dosage: 25 MG
     Route: 048
     Dates: start: 20110301
  2. PRADAXA [Suspect]
     Indication: ATRIAL FIBRILLATION
     Dosage: 300 MG
     Route: 048
     Dates: start: 20110318, end: 20110510
  3. CARDIZEM [Suspect]
  4. METOPROLOL TARTRATE [Suspect]
  5. ASPIRIN [Concomitant]
     Indication: ATRIAL FIBRILLATION
     Dosage: 325 MG
     Route: 048
     Dates: start: 20110511

REACTIONS (2)
  - FEELING ABNORMAL [None]
  - HEADACHE [None]
